FAERS Safety Report 8962892 (Version 1)
Quarter: 2012Q4

REPORT INFORMATION
  Report Type: 
  Country: IT (occurrence: IT)
  Receive Date: 20121214
  Receipt Date: 20121214
  Transmission Date: 20130627
  Serious: Yes (Hospitalization)
  Sender: FDA-Public Use
  Company Number: IT-SANOFI-AVENTIS-2012SA089009

PATIENT
  Age: 78 Year
  Sex: Male

DRUGS (5)
  1. CLOPIDOGREL BISULFATE [Suspect]
     Indication: CEREBROVASCULAR ACCIDENT
     Dosage: posologic unit
     Route: 048
     Dates: start: 20120101, end: 20120922
  2. ESCITALOPRAM [Concomitant]
  3. MINIAS [Concomitant]
  4. TRIATEC [Concomitant]
  5. PANTORC [Concomitant]

REACTIONS (2)
  - Respiratory failure [Recovering/Resolving]
  - Haemoptysis [Recovering/Resolving]
